FAERS Safety Report 6368612-6 (Version None)
Quarter: 2009Q3

REPORT INFORMATION
  Report Type: 
  Country: None (occurrence: None)
  Receive Date: 20090917
  Receipt Date: 20090917
  Transmission Date: 20100115
  Serious: Yes (Death)
  Sender: FDA-Public Use
  Company Number: None

PATIENT
  Sex: Male
  Weight: 83.9154 kg

DRUGS (1)
  1. DEPAKOTE [Suspect]
     Indication: MANIA
     Dosage: 1000 MG 1X/DAY PO
     Route: 048
     Dates: start: 20090826, end: 20090903

REACTIONS (1)
  - COMPLETED SUICIDE [None]
